FAERS Safety Report 18223384 (Version 1)
Quarter: 2020Q3

REPORT INFORMATION
  Report Type: Spontaneous
  Country: SE (occurrence: SE)
  Receive Date: 20200902
  Receipt Date: 20200902
  Transmission Date: 20201103
  Serious: Yes (Hospitalization)
  Sender: FDA-Public Use
  Company Number: SE-JNJFOC-20200834165

PATIENT
  Age: 18 Year
  Sex: Male

DRUGS (1)
  1. CONCERTA [Suspect]
     Active Substance: METHYLPHENIDATE HYDROCHLORIDE
     Indication: ATTENTION DEFICIT HYPERACTIVITY DISORDER
     Dosage: 20 ST
     Route: 065
     Dates: start: 202008, end: 202008

REACTIONS (6)
  - Intentional self-injury [Unknown]
  - Intentional overdose [Unknown]
  - Akathisia [Unknown]
  - Tremor [Unknown]
  - Toxicity to various agents [Unknown]
  - Tachycardia [Unknown]

NARRATIVE: CASE EVENT DATE: 202008
